FAERS Safety Report 13303924 (Version 1)
Quarter: 2017Q1

REPORT INFORMATION
  Report Type: Spontaneous
  Country: US (occurrence: US)
  Receive Date: 20170307
  Receipt Date: 20170307
  Transmission Date: 20170428
  Serious: No
  Sender: FDA-Public Use
  Company Number: US-BIOGEN-2017BI00365463

PATIENT
  Sex: Female

DRUGS (1)
  1. AVONEX [Suspect]
     Active Substance: INTERFERON BETA-1A
     Indication: MULTIPLE SCLEROSIS
     Route: 065
     Dates: start: 20160427, end: 20161201

REACTIONS (6)
  - Fatigue [Unknown]
  - Influenza like illness [Unknown]
  - Thyroid disorder [Unknown]
  - Nausea [Unknown]
  - Asthma [Unknown]
  - Spinal disorder [Unknown]
